FAERS Safety Report 9531794 (Version 1)
Quarter: 2013Q2

REPORT INFORMATION
  Report Type: Spontaneous
  Country: US (occurrence: None)
  Receive Date: 20130418
  Receipt Date: 20130418
  Transmission Date: 20140414
  Serious: No
  Sender: FDA-Public Use
  Company Number: 2013PROUSA02458

PATIENT
  Age: 75 Year
  Sex: Male
  Weight: 93.9 kg

DRUGS (10)
  1. PROVENGE [Suspect]
     Indication: PROSTATE CANCER METASTATIC
     Dosage: SINGLE
     Route: 042
     Dates: start: 20121207, end: 20121207
  2. METFORMIN HCL [Concomitant]
  3. SITAGLIPTIN [Concomitant]
  4. GLIPIZIDE [Concomitant]
  5. ACARBOSE [Concomitant]
  6. VALSARTAN [Concomitant]
  7. OMEPRAZOLE [Concomitant]
  8. GEMFIBROZIL [Concomitant]
  9. BIMATOPROST [Concomitant]
  10. ATIVAN [Concomitant]

REACTIONS (2)
  - Bone pain [None]
  - Musculoskeletal pain [None]
